FAERS Safety Report 4312658-6 (Version None)
Quarter: 2004Q1

REPORT INFORMATION
  Report Type: 
  Country: None (occurrence: None)
  Receive Date: 20040302
  Receipt Date: 20031215
  Transmission Date: 20041129
  Serious: No
  Sender: FDA-Public Use
  Company Number: 200330259BWH

PATIENT
  Age: 67 Year
  Sex: Male
  Weight: 81.6475 kg

DRUGS (4)
  1. LEVITRA [Suspect]
     Indication: ERECTILE DYSFUNCTION
     Dosage: 20 MG, ONCE, ORAL
     Route: 048
     Dates: start: 20031209
  2. LIPITOR [Concomitant]
  3. LISINOPRIL [Concomitant]
  4. VIAGRA [Concomitant]

REACTIONS (3)
  - DIZZINESS [None]
  - DYSPEPSIA [None]
  - NAUSEA [None]
